FAERS Safety Report 9838154 (Version 1)
Quarter: 2014Q1

REPORT INFORMATION
  Report Type: Report from Study
  Country: AT (occurrence: AT)
  Receive Date: 20140123
  Receipt Date: 20140123
  Transmission Date: 20141002
  Serious: Yes (Death)
  Sender: FDA-Public Use
  Company Number: AT-ROCHE-1337641

PATIENT
  Age: 72 Year
  Sex: Male
  Weight: 50 kg

DRUGS (9)
  1. RITUXIMAB [Suspect]
     Indication: B-CELL SMALL LYMPHOCYTIC LYMPHOMA
     Route: 042
  2. NOVALGIN [Concomitant]
     Route: 065
     Dates: start: 19980928
  3. SOLU DACORTIN H [Concomitant]
     Route: 065
     Dates: start: 19981023
  4. SOLU DACORTIN H [Concomitant]
     Route: 065
     Dates: start: 19981126
  5. ERYTHROCYTE CONCENTRATE [Concomitant]
     Route: 065
     Dates: start: 19980928
  6. ERYTHROCYTE CONCENTRATE [Concomitant]
     Route: 065
     Dates: start: 19981006
  7. ERYTHROCYTE CONCENTRATE [Concomitant]
     Route: 065
     Dates: start: 19981023
  8. ERYTHROCYTE CONCENTRATE [Concomitant]
     Route: 065
     Dates: start: 19981126
  9. MEXALEN [Concomitant]
     Route: 065
     Dates: start: 19981023

REACTIONS (5)
  - Asthenia [Fatal]
  - Lymphoplasmacytoid lymphoma/immunocytoma [Fatal]
  - Thrombocytosis [Unknown]
  - Chills [Unknown]
  - Confusional state [Unknown]
